FAERS Safety Report 5831684-9 (Version None)
Quarter: 2008Q3

REPORT INFORMATION
  Report Type: 
  Country: None (occurrence: None)
  Receive Date: 20080730
  Receipt Date: 20080716
  Transmission Date: 20090109
  Serious: Yes (Hospitalization)
  Sender: FDA-Public Use
  Company Number: 2008AL008372

PATIENT
  Age: 74 Year
  Sex: Female
  Weight: 79.8331 kg

DRUGS (14)
  1. DIGITEK TABLETS, USP (AMIDE) [Suspect]
     Indication: ATRIAL FIBRILLATION
     Dosage: 0.25MG, DAILY, PO
     Route: 048
     Dates: start: 20000301, end: 20080120
  2. COUMADIN [Concomitant]
  3. T/TH [Concomitant]
  4. ZETIA [Concomitant]
  5. DILTIAZEM HCL [Concomitant]
  6. BENICAR [Concomitant]
  7. ZOLAFT [Concomitant]
  8. LIPITOR [Concomitant]
  9. BYNTHROID [Concomitant]
  10. DIGOXIN [Concomitant]
  11. LISINOPRIL [Concomitant]
  12. MULTI-VITAMIN [Concomitant]
  13. TYLENOL [Concomitant]
  14. VALIUM [Concomitant]

REACTIONS (15)
  - ATRIOVENTRICULAR BLOCK COMPLETE [None]
  - BRADYCARDIA [None]
  - CAROTID ARTERY STENOSIS [None]
  - CEREBRAL ATROPHY [None]
  - CONFUSIONAL STATE [None]
  - DIZZINESS [None]
  - HAEMODIALYSIS [None]
  - HYPERKALAEMIA [None]
  - HYPOTENSION [None]
  - INTERNATIONAL NORMALISED RATIO INCREASED [None]
  - NODAL RHYTHM [None]
  - RENAL CYST [None]
  - RENAL FAILURE ACUTE [None]
  - SYNCOPE [None]
  - THERAPEUTIC AGENT TOXICITY [None]
